FAERS Safety Report 5648192-0 (Version None)
Quarter: 2008Q1

REPORT INFORMATION
  Report Type: 
  Country: None (occurrence: None)
  Receive Date: 20080131
  Receipt Date: 20071117
  Transmission Date: 20080703
  Serious: No
  Sender: FDA-Public Use
  Company Number: US200708003506

PATIENT
  Age: 64 Year
  Sex: Female

DRUGS (6)
  1. BYETTA [Suspect]
     Indication: TYPE 2 DIABETES MELLITUS
     Dosage: 5 UG, 2/D, SUBCUTANEOUS ; 5 UG, 2/D, SUBCUTANEOUS
     Route: 058
     Dates: start: 20070701
  2. BYETTA [Suspect]
     Indication: TYPE 2 DIABETES MELLITUS
     Dosage: 5 UG, 2/D, SUBCUTANEOUS ; 5 UG, 2/D, SUBCUTANEOUS
     Route: 058
     Dates: start: 20070812
  3. BYETTA [Suspect]
  4. GLYBURIDE [Concomitant]
  5. METFORMIN HCL [Concomitant]
  6. AVANDIA [Concomitant]

REACTIONS (13)
  - ABDOMINAL DISTENSION [None]
  - BLOOD GLUCOSE DECREASED [None]
  - BLOOD GLUCOSE INCREASED [None]
  - DECREASED APPETITE [None]
  - DIARRHOEA [None]
  - DYSPEPSIA [None]
  - ERUCTATION [None]
  - FEELING JITTERY [None]
  - INJECTION SITE ERYTHEMA [None]
  - INJECTION SITE PRURITUS [None]
  - NAUSEA [None]
  - URTICARIA [None]
  - WEIGHT DECREASED [None]
